FAERS Safety Report 25751682 (Version 2)
Quarter: 2025Q3

REPORT INFORMATION
  Report Type: Spontaneous
  Country: JP (occurrence: JP)
  Receive Date: 20250902
  Receipt Date: 20250904
  Transmission Date: 20251020
  Serious: Yes (Hospitalization, Disabling, Other)
  Sender: PFIZER
  Company Number: JP-MLMSERVICE-20250818-PI619674-00158-1

PATIENT
  Age: 75 Year
  Sex: Female

DRUGS (3)
  1. LEUCOVORIN CALCIUM [Suspect]
     Active Substance: LEUCOVORIN CALCIUM
     Indication: Rectal cancer
  2. OXALIPLATIN [Suspect]
     Active Substance: OXALIPLATIN
     Indication: Rectal cancer
  3. FLUOROURACIL [Suspect]
     Active Substance: FLUOROURACIL
     Indication: Rectal cancer

REACTIONS (1)
  - Paraneoplastic dermatomyositis [Recovered/Resolved]
